FAERS Safety Report 20560665 (Version 4)
Quarter: 2022Q1

REPORT INFORMATION
  Report Type: Report from Study
  Country: US (occurrence: US)
  Receive Date: 20220307
  Receipt Date: 20220329
  Transmission Date: 20220424
  Serious: Yes (Hospitalization, Disabling, Other)
  Sender: FDA-Public Use
  Company Number: US-AMGEN-USACT2022036399

PATIENT
  Age: 65 Year
  Sex: Female
  Weight: 92.5 kg

DRUGS (9)
  1. AMG-510 [Suspect]
     Active Substance: AMG-510
     Indication: K-ras gene mutation
     Dosage: 960 MILLIGRAM
     Route: 048
     Dates: start: 20211109
  2. AMG-510 [Suspect]
     Active Substance: AMG-510
     Indication: Colorectal cancer stage III
  3. PANITUMUMAB [Suspect]
     Active Substance: PANITUMUMAB
     Indication: K-ras gene mutation
     Dosage: 565.8 MILLIGRAM
     Route: 042
     Dates: start: 20211109
  4. PANITUMUMAB [Suspect]
     Active Substance: PANITUMUMAB
     Indication: Colorectal cancer stage III
  5. DOXYCYCLINE [Concomitant]
     Active Substance: DOXYCYCLINE
     Dosage: 100 MILLIGRAM
     Route: 048
     Dates: start: 20211115
  6. ACRIVASTINE [Concomitant]
     Active Substance: ACRIVASTINE
     Indication: Rash
     Dosage: UNK
  7. TRIAMCINOLONE [Concomitant]
     Active Substance: TRIAMCINOLONE
     Indication: Rash
     Dosage: UNK
  8. CLOBETASOL [CLOBETASOL PROPIONATE] [Concomitant]
     Indication: Rash
     Dosage: UNK
  9. CRESTOR [Concomitant]
     Active Substance: ROSUVASTATIN CALCIUM
     Dosage: 10 MILLIGRAM
     Route: 048
     Dates: start: 20211013

REACTIONS (2)
  - Pulmonary embolism [Recovered/Resolved]
  - Oedema peripheral [Not Recovered/Not Resolved]

NARRATIVE: CASE EVENT DATE: 20220222
